FAERS Safety Report 14625411 (Version 1)
Quarter: 2018Q1

REPORT INFORMATION
  Report Type: Spontaneous
  Country: US (occurrence: US)
  Receive Date: 20180312
  Receipt Date: 20180312
  Transmission Date: 20180509
  Serious: No
  Sender: FDA-Public Use
  Company Number: US-ALLERGAN-1710507US

PATIENT
  Sex: Female
  Weight: 61.22 kg

DRUGS (2)
  1. OXYTROL FOR WOMEN [Suspect]
     Active Substance: OXYBUTYNIN
     Indication: HYPERTONIC BLADDER
     Dosage: 1 DF, UNK
     Route: 062
     Dates: start: 20170101
  2. OXYTROL FOR WOMEN [Suspect]
     Active Substance: OXYBUTYNIN
     Dosage: 1 DF, UNK
     Route: 062

REACTIONS (3)
  - Product packaging issue [Unknown]
  - Application site discolouration [Not Recovered/Not Resolved]
  - Product adhesion issue [Unknown]
